FAERS Safety Report 17948495 (Version 1)
Quarter: 2020Q2

REPORT INFORMATION
  Report Type: Spontaneous
  Country: US (occurrence: US)
  Receive Date: 20200626
  Receipt Date: 20200626
  Transmission Date: 20200714
  Serious: No
  Sender: FDA-Public Use
  Company Number: US-009507513-2006USA009259

PATIENT
  Sex: Female

DRUGS (1)
  1. NUVARING [Suspect]
     Active Substance: ETHINYL ESTRADIOL\ETONOGESTREL
     Dosage: UNK

REACTIONS (4)
  - Alopecia [Unknown]
  - Hormone level abnormal [Unknown]
  - Mood swings [Unknown]
  - Muscle spasms [Unknown]

NARRATIVE: CASE EVENT DATE: 202001
